FAERS Safety Report 24028179 (Version 1)
Quarter: 2024Q2

REPORT INFORMATION
  Report Type: Spontaneous
  Country: US (occurrence: US)
  Receive Date: 20240628
  Receipt Date: 20240628
  Transmission Date: 20240715
  Serious: Yes (Hospitalization)
  Sender: FDA-Public Use
  Company Number: US-Indivior Limited-INDV-145272-2024

PATIENT
  Age: 31 Year
  Sex: Male

DRUGS (1)
  1. OPVEE [Suspect]
     Active Substance: NALMEFENE HYDROCHLORIDE
     Indication: Overdose
     Dosage: 2.7 MILLIGRAM, ONE TIME DOSE
     Route: 045
     Dates: start: 20240401, end: 20240401

REACTIONS (1)
  - Medical observation [Recovered/Resolved]

NARRATIVE: CASE EVENT DATE: 20240401
